FAERS Safety Report 9461948 (Version 1)
Quarter: 2013Q3

REPORT INFORMATION
  Report Type: Spontaneous
  Country: US (occurrence: US)
  Receive Date: 20130816
  Receipt Date: 20130816
  Transmission Date: 20140515
  Serious: No
  Sender: FDA-Public Use
  Company Number: US-BRISTOL-MYERS SQUIBB COMPANY-17135989

PATIENT
  Sex: Female

DRUGS (1)
  1. GLYBURIDE + METFORMIN HCL TABS [Suspect]
     Dates: start: 201105

REACTIONS (1)
  - Adverse event [Unknown]
